FAERS Safety Report 9845029 (Version 2)
Quarter: 2014Q1

REPORT INFORMATION
  Report Type: Spontaneous
  Country: US (occurrence: US)
  Receive Date: 20140127
  Receipt Date: 20140129
  Transmission Date: 20141002
  Serious: Yes (Other)
  Sender: FDA-Public Use
  Company Number: US-PFIZER INC-2010101122

PATIENT
  Age: 66 Year
  Sex: Female

DRUGS (3)
  1. METHYLPREDNISOLONE [Suspect]
     Dosage: 60 MG, EVERY 6 HOURS
     Route: 042
  2. PHENYTOIN [Concomitant]
  3. LEVETIRACETAM [Concomitant]

REACTIONS (1)
  - Herpes simplex [Unknown]
